FAERS Safety Report 6971663-1 (Version None)
Quarter: 2010Q3

REPORT INFORMATION
  Report Type: 
  Country: None (occurrence: None)
  Receive Date: 20100908
  Receipt Date: 20100830
  Transmission Date: 20110219
  Serious: Yes (Hospitalization, Other)
  Sender: FDA-Public Use
  Company Number: PHHY2010FR32998

PATIENT
  Age: 69 Year
  Sex: Female

DRUGS (3)
  1. ZOLEDRONATE T29581++BM [Suspect]
     Dosage: UNK
     Dates: start: 20091002
  2. ZOLEDRONATE T29581++BM [Suspect]
     Dosage: UNK
     Dates: start: 20100115
  3. DURAGESIC-100 [Concomitant]
     Dosage: 75 UG, UNK
     Dates: start: 20100116

REACTIONS (10)
  - BLOOD PRESSURE INCREASED [None]
  - BONE DISORDER [None]
  - BONE PAIN [None]
  - CYANOSIS [None]
  - DELIRIUM [None]
  - LACRIMATION INCREASED [None]
  - PAIN [None]
  - SPINAL OPERATION [None]
  - THROMBOSIS IN DEVICE [None]
  - TUMOUR MARKER INCREASED [None]
